FAERS Safety Report 14293352 (Version 4)
Quarter: 2018Q1

REPORT INFORMATION
  Report Type: Report from Study
  Country: US (occurrence: US)
  Receive Date: 20171215
  Receipt Date: 20180115
  Transmission Date: 20180509
  Serious: Yes (Hospitalization)
  Sender: FDA-Public Use
  Company Number: US-GILEAD-2017-0310866

PATIENT
  Age: 71 Year
  Sex: Male

DRUGS (1)
  1. RANOLAZINE. [Suspect]
     Active Substance: RANOLAZINE
     Indication: ANGINA PECTORIS
     Dosage: 500 MG, UNK
     Route: 048
     Dates: start: 2017

REACTIONS (5)
  - Arthropathy [Unknown]
  - Ill-defined disorder [Recovered/Resolved]
  - Chest pain [Unknown]
  - Intentional product use issue [Recovered/Resolved]
  - Weight fluctuation [Unknown]
